FAERS Safety Report 23789845 (Version 1)
Quarter: 2024Q2

REPORT INFORMATION
  Report Type: Spontaneous
  Country: US (occurrence: US)
  Receive Date: 20240426
  Receipt Date: 20240426
  Transmission Date: 20240716
  Serious: Yes (Other)
  Sender: FDA-Public Use
  Company Number: US-LUNDBECK-DKLU3077205

PATIENT
  Age: 2 Year
  Sex: Male

DRUGS (1)
  1. SABRIL [Suspect]
     Active Substance: VIGABATRIN
     Indication: Product used for unknown indication
     Route: 065

REACTIONS (2)
  - Croup infectious [Recovered/Resolved]
  - Ear infection [Recovered/Resolved]
